FAERS Safety Report 5862088-0 (Version None)
Quarter: 2008Q3

REPORT INFORMATION
  Report Type: 
  Country: None (occurrence: None)
  Receive Date: 20080828
  Receipt Date: 20080819
  Transmission Date: 20090109
  Serious: Yes (Other)
  Sender: FDA-Public Use
  Company Number: CA-JNJFOC-20080804526

PATIENT
  Sex: Female

DRUGS (1)
  1. REMICADE [Suspect]
     Indication: ANKYLOSING SPONDYLITIS
     Dosage: COMPLETED 3 LOADING INFUSIONS ON UNKNOWN DATES.
     Route: 042

REACTIONS (2)
  - ATTENTION DEFICIT/HYPERACTIVITY DISORDER [None]
  - MEMORY IMPAIRMENT [None]
